FAERS Safety Report 9339573 (Version 1)
Quarter: 2013Q2

REPORT INFORMATION
  Report Type: Spontaneous
  Country: US (occurrence: US)
  Receive Date: 20130610
  Receipt Date: 20130610
  Transmission Date: 20140414
  Serious: No
  Sender: FDA-Public Use
  Company Number: US-BIOGENIDEC-2013BI048815

PATIENT
  Sex: Female

DRUGS (1)
  1. TYSABRI [Suspect]
     Indication: MULTIPLE SCLEROSIS
     Route: 042
     Dates: start: 20130521

REACTIONS (8)
  - Diarrhoea [Recovered/Resolved]
  - Bladder disorder [Recovered/Resolved]
  - Mental disorder [Recovered/Resolved]
  - Nervousness [Unknown]
  - Migraine [Unknown]
  - Muscle spasms [Unknown]
  - Gait disturbance [Unknown]
  - Multiple sclerosis [Unknown]
